FAERS Safety Report 9086064 (Version 1)
Quarter: 2013Q1

REPORT INFORMATION
  Report Type: Report from Study
  Country: US (occurrence: US)
  Receive Date: 20130131
  Receipt Date: 20130131
  Transmission Date: 20140127
  Serious: No
  Sender: FDA-Public Use
  Company Number: US-ABBOTT-12P-163-0997017-00

PATIENT
  Sex: Female
  Weight: 57.2 kg

DRUGS (3)
  1. HUMIRA [Suspect]
     Indication: RHEUMATOID ARTHRITIS
     Dates: start: 200902, end: 201106
  2. HUMIRA [Suspect]
     Dosage: ONLY TOOK 4 DOSES
     Dates: start: 201106, end: 201208
  3. HUMIRA [Suspect]
     Dates: start: 201208

REACTIONS (5)
  - Unevaluable event [Recovering/Resolving]
  - Arthralgia [Recovering/Resolving]
  - Joint stiffness [Not Recovered/Not Resolved]
  - Stress [Not Recovered/Not Resolved]
  - Rheumatoid arthritis [Recovering/Resolving]
